FAERS Safety Report 6664230-0 (Version None)
Quarter: 2010Q2

REPORT INFORMATION
  Report Type: 
  Country: None (occurrence: None)
  Receive Date: 20100401
  Receipt Date: 20100322
  Transmission Date: 20101027
  Serious: Yes (Death)
  Sender: FDA-Public Use
  Company Number: PHHY2010DE19294

PATIENT
  Sex: Male
  Weight: 86 kg

DRUGS (6)
  1. PROVAS [Suspect]
     Indication: HYPERTENSION
     Dosage: 160 MG, QD
     Dates: start: 20050101
  2. DOXACOR [Suspect]
     Indication: HYPERTENSION
     Dosage: 1 DF, BID
     Dates: start: 20090806
  3. PENTAERYTHRITOL TETRANITRATE [Suspect]
     Indication: CORONARY ARTERY DISEASE
     Dosage: 80 MG PER DAY
     Dates: start: 20050101
  4. FALITHROM [Suspect]
     Indication: ATRIAL FIBRILLATION
     Dosage: UNK
     Dates: start: 20050101
  5. TORSEMIDE [Suspect]
     Indication: OEDEMA
     Dosage: 0.5 DF, BID
     Dates: start: 20051101
  6. NO TREATMENT RECEIVED NOMED [Suspect]

REACTIONS (1)
  - ATRIAL FIBRILLATION [None]
